FAERS Safety Report 7664677-X (Version None)
Quarter: 2011Q3

REPORT INFORMATION
  Report Type: 
  Country: None (occurrence: None)
  Receive Date: 20110806
  Receipt Date: 20110124
  Transmission Date: 20111222
  Serious: Yes (Hospitalization, Other)
  Sender: FDA-Public Use
  Company Number: US-ABBOTT-11P-163-0700390-00

PATIENT
  Sex: Male
  Weight: 86.26 kg

DRUGS (9)
  1. LISINOPRIL [Concomitant]
     Indication: HYPERTENSION
     Route: 048
  2. EFFIENT [Concomitant]
     Indication: PRODUCT USED FOR UNKNOWN INDICATION
     Route: 048
  3. NIASPAN [Suspect]
     Dosage: 2 EVERY NIGHT AT BEDTIME
     Dates: start: 20110113, end: 20110120
  4. BYSTOLIC [Concomitant]
     Indication: HYPERTENSION
     Route: 048
  5. VYTORIN [Concomitant]
     Indication: PRODUCT USED FOR UNKNOWN INDICATION
     Dosage: 1 IN 1 DAY, 10/40 MG
     Route: 048
  6. NIASPAN [Suspect]
     Dosage: 1 EVERY NIGHT AT BEDTIME
     Dates: start: 20110121
  7. NIASPAN [Suspect]
     Indication: BLOOD CHOLESTEROL ABNORMAL
     Dosage: 1 EVERY NIGHT AT BEDTIME
     Dates: start: 20100601, end: 20110112
  8. ASPIRIN [Concomitant]
     Indication: PRODUCT USED FOR UNKNOWN INDICATION
     Dosage: 1 EVERY AM
     Route: 048
  9. LOVAZA [Concomitant]
     Indication: PRODUCT USED FOR UNKNOWN INDICATION
     Route: 048

REACTIONS (3)
  - VENTRICULAR TACHYCARDIA [None]
  - PRURITUS [None]
  - ATRIAL FIBRILLATION [None]
